FAERS Safety Report 16927937 (Version 4)
Quarter: 2019Q4

REPORT INFORMATION
  Report Type: Report from Study
  Country: US (occurrence: US)
  Receive Date: 20191017
  Receipt Date: 20191025
  Transmission Date: 20200122
  Serious: No
  Sender: FDA-Public Use
  Company Number: US-IPSEN BIOPHARMACEUTICALS, INC.-2019-07602

PATIENT
  Age: 10 Year
  Sex: Female
  Weight: 56.4 kg

DRUGS (1)
  1. DYSPORT [Suspect]
     Active Substance: ABOBOTULINUMTOXINA
     Indication: MUSCLE SPASTICITY
     Dosage: 1200; CYCLICAL
     Dates: start: 20180822, end: 20180822

REACTIONS (4)
  - Viral pharyngitis [Recovered/Resolved]
  - Pharyngitis [Recovered/Resolved]
  - Fall [Recovered/Resolved]
  - Prescribed overdose [Unknown]

NARRATIVE: CASE EVENT DATE: 20181123
